FAERS Safety Report 8683046 (Version 3)
Quarter: 2013Q1

REPORT INFORMATION
  Report Type: Spontaneous
  Country: US (occurrence: US)
  Receive Date: 20120725
  Receipt Date: 20130215
  Transmission Date: 20140127
  Serious: No
  Sender: FDA-Public Use
  Company Number: US-ASTRAZENECA-2012SE48709

PATIENT
  Age: 43 Year
  Sex: Female

DRUGS (2)
  1. SEROQUEL [Suspect]
     Indication: SCHIZOAFFECTIVE DISORDER
     Route: 048
  2. SEROQUEL [Suspect]
     Indication: SCHIZOAFFECTIVE DISORDER
     Route: 048

REACTIONS (7)
  - Activities of daily living impaired [Unknown]
  - Hallucination [Unknown]
  - Paranoia [Unknown]
  - Crohn^s disease [Unknown]
  - Drug withdrawal syndrome [Unknown]
  - Tremor [Unknown]
  - Drug dose omission [Unknown]
